FAERS Safety Report 7726603-4 (Version None)
Quarter: 2011Q3

REPORT INFORMATION
  Report Type: 
  Country: None (occurrence: None)
  Receive Date: 20110902
  Receipt Date: 20110822
  Transmission Date: 20111222
  Serious: Yes (Hospitalization)
  Sender: FDA-Public Use
  Company Number: DE-ELI_LILLY_AND_COMPANY-DE201108006786

PATIENT
  Age: 13 Year
  Sex: Male
  Weight: 45 kg

DRUGS (7)
  1. STRATTERA [Suspect]
     Dosage: 25 MG, QD
     Route: 048
     Dates: start: 20110616, end: 20110626
  2. METHYLPHENIDATE [Concomitant]
     Indication: ATTENTION DEFICIT/HYPERACTIVITY DISORDER
     Dosage: 20 MG, QD
     Route: 048
     Dates: end: 20110813
  3. METHYLPHENIDATE [Concomitant]
     Dosage: 10 MG, QD
     Route: 048
     Dates: start: 20110814, end: 20110815
  4. STRATTERA [Suspect]
     Dosage: 18 MG, QD
     Route: 048
     Dates: start: 20110607, end: 20110615
  5. STRATTERA [Suspect]
     Indication: ATTENTION DEFICIT/HYPERACTIVITY DISORDER
     Dosage: 10 MG, QD
     Route: 048
     Dates: start: 20110531, end: 20110606
  6. STRATTERA [Suspect]
     Dosage: 40 MG, QD
     Route: 048
     Dates: start: 20110627, end: 20110704
  7. STRATTERA [Suspect]
     Dosage: 50 MG, QD
     Route: 048
     Dates: start: 20110705, end: 20110812

REACTIONS (2)
  - BLOOD THYROID STIMULATING HORMONE INCREASED [None]
  - NEPHROTIC SYNDROME [None]
